FAERS Safety Report 20574146 (Version 1)
Quarter: 2022Q1

REPORT INFORMATION
  Report Type: Report from Study
  Country: CA (occurrence: CA)
  Receive Date: 20220309
  Receipt Date: 20220309
  Transmission Date: 20220423
  Serious: Yes (Other)
  Sender: FDA-Public Use
  Company Number: CA-MYLANLABS-2022M1018121

PATIENT
  Age: 63 Year
  Sex: Female

DRUGS (2)
  1. HULIO [Suspect]
     Active Substance: ADALIMUMAB-FKJP
     Indication: Ankylosing spondylitis
     Dosage: UNK
  2. HULIO [Suspect]
     Active Substance: ADALIMUMAB-FKJP
     Dosage: 40 MILLIGRAM, QW

REACTIONS (6)
  - Ankylosing spondylitis [Unknown]
  - Abdominal pain [Unknown]
  - Diarrhoea [Unknown]
  - Defaecation disorder [Unknown]
  - Arthralgia [Unknown]
  - Condition aggravated [Unknown]
